FAERS Safety Report 4829610-4 (Version None)
Quarter: 2005Q4

REPORT INFORMATION
  Report Type: 
  Country: None (occurrence: None)
  Receive Date: 20051027
  Receipt Date: 20050121
  Transmission Date: 20060501
  Serious: Yes (Other)
  Sender: FDA-Public Use
  Company Number: 200320429US

PATIENT
  Age: 76 Year
  Sex: Female
  Weight: 95 kg

DRUGS (23)
  1. ARAVA [Suspect]
     Indication: RHEUMATOID ARTHRITIS
     Dosage: 20 MG PO
     Route: 048
     Dates: start: 20020101, end: 20020401
  2. ESTROGENS CONJUGATED (PREMARIN0 [Concomitant]
  3. METHOTREXATE [Concomitant]
  4. LASIX [Concomitant]
  5. METHYLPREDNISOLONE ACETATE (DEPO-MEDROL) [Concomitant]
  6. DECADRON [Concomitant]
  7. KETOROLAC TROMETHAMINE (TORADOL) [Concomitant]
  8. FOLIC ACID [Concomitant]
  9. CELEBREX [Concomitant]
  10. PREDNISONE [Concomitant]
  11. NABUMETONE [Concomitant]
  12. PARACETAMOL (APAP) [Concomitant]
  13. BEXTRA [Concomitant]
  14. MAVIK [Concomitant]
  15. PENTOXIFYLLINE [Concomitant]
  16. LISINOPRIL [Concomitant]
  17. SULAR [Concomitant]
  18. INFLIXIMAB (REMICADE) [Concomitant]
  19. VITAMIN E [Concomitant]
  20. MAGNESIUM [Concomitant]
  21. CALCIUM GLUCONATE [Concomitant]
  22. VENLAFAXINE (EFFEXOR XR) [Concomitant]
  23. MULTI-VITAMIN [Concomitant]

REACTIONS (12)
  - BRONCHITIS [None]
  - COUGH [None]
  - DYSPNOEA [None]
  - ERYTHEMA [None]
  - FLUSHING [None]
  - GASTRITIS [None]
  - POST THROMBOTIC SYNDROME [None]
  - PRURITUS [None]
  - STEVENS-JOHNSON SYNDROME [None]
  - STOMACH DISCOMFORT [None]
  - URTICARIA [None]
  - WEIGHT DECREASED [None]
